FAERS Safety Report 7066634-3 (Version None)
Quarter: 2010Q4

REPORT INFORMATION
  Report Type: 
  Country: None (occurrence: None)
  Receive Date: 20101027
  Receipt Date: 20100729
  Transmission Date: 20110411
  Serious: No
  Sender: FDA-Public Use
  Company Number: US-WYE-H16000510

PATIENT
  Sex: Female
  Weight: 77.18 kg

DRUGS (4)
  1. PREMPRO [Suspect]
     Indication: MENOPAUSE
     Dosage: PINK PILL 2.5 MG DAILY
     Route: 048
     Dates: start: 20050101
  2. PREMPRO [Suspect]
     Dosage: PURPLE PILL 0.625MG/5MG
     Route: 048
  3. VITAMINS [Concomitant]
  4. ZOLPIDEM [Concomitant]

REACTIONS (9)
  - DIZZINESS [None]
  - DRUG WITHDRAWAL SYNDROME [None]
  - DYSMENORRHOEA [None]
  - FEELING DRUNK [None]
  - INAPPROPRIATE SCHEDULE OF DRUG ADMINISTRATION [None]
  - MEMORY IMPAIRMENT [None]
  - METRORRHAGIA [None]
  - PRODUCT LABEL CONFUSION [None]
  - WEIGHT INCREASED [None]
